FAERS Safety Report 18769536 (Version 1)
Quarter: 2021Q1

REPORT INFORMATION
  Report Type: Report from Study
  Country: GB (occurrence: GB)
  Receive Date: 20210121
  Receipt Date: 20210121
  Transmission Date: 20210419
  Serious: Yes (Other)
  Sender: FDA-Public Use
  Company Number: GB-TAKEDA-SPV1-2008-01866

PATIENT
  Age: 7 Year
  Sex: Male

DRUGS (31)
  1. FUSIDINE [Concomitant]
     Active Substance: FUSIDIC ACID
     Indication: EYE INFECTION
  2. HYDROCORTISONE. [Concomitant]
     Active Substance: HYDROCORTISONE
     Dosage: 20 MG, 1X/DAY:QD
     Route: 065
     Dates: start: 20051020
  3. IBUPROFEN. [Concomitant]
     Active Substance: IBUPROFEN
     Indication: ARTHRALGIA
  4. PANDEMRIX [Concomitant]
     Active Substance: INFLUENZA VIRUS VACCINE, SWINE
     Indication: H1N1 INFLUENZA
  5. DICLOFENAC [Concomitant]
     Active Substance: DICLOFENAC
     Indication: PAIN
  6. SODIUM VALPROATE [Concomitant]
     Active Substance: VALPROATE SODIUM
     Indication: NERVOUS SYSTEM DISORDER
  7. VALLERGAN [Concomitant]
     Active Substance: TRIMEPRAZINE
     Indication: SLEEP DISORDER
  8. RISPERIDONE. [Concomitant]
     Active Substance: RISPERIDONE
     Indication: PRODUCT USED FOR UNKNOWN INDICATION
     Dosage: 1 MG, 1X/DAY:QD
     Route: 065
     Dates: start: 20051020
  9. LOPERAMIDE [Concomitant]
     Active Substance: LOPERAMIDE
     Indication: GASTROINTESTINAL DISORDER
  10. IDURSULFASE [Suspect]
     Active Substance: IDURSULFASE
     Indication: MUCOPOLYSACCHARIDOSIS II
     Dosage: 0.5 MG/KG, UNKNOWN
     Route: 041
     Dates: start: 20070626, end: 2007
  11. HYDROXYZINE [Concomitant]
     Active Substance: HYDROXYZINE HYDROCHLORIDE
     Indication: PREMEDICATION
     Dosage: 25 MG, AS REQ^D
     Route: 065
     Dates: start: 20070626
  12. MELATONIN [Concomitant]
     Active Substance: MELATONIN
     Indication: SLEEP DISORDER
     Dosage: 10 MG, 1X/DAY:QD
     Route: 065
     Dates: start: 20020501
  13. MELATONIN [Concomitant]
     Active Substance: MELATONIN
     Dosage: 5 MG, 2X/DAY:BID
     Route: 065
     Dates: start: 20020325, end: 20020501
  14. PIRITON [Concomitant]
     Active Substance: CHLORPHENIRAMINE MALEATE
     Indication: ANTIALLERGIC THERAPY
  15. HYDROCORTISONE. [Concomitant]
     Active Substance: HYDROCORTISONE
     Dosage: 100 MG, UNK
     Route: 065
     Dates: start: 200411
  16. ALIMEMAZINE [Concomitant]
     Active Substance: TRIMEPRAZINE
     Indication: SEDATIVE THERAPY
     Dosage: 5 ML, AS REQ^D
     Route: 065
     Dates: start: 20070904
  17. PARACETAMOL [Concomitant]
     Active Substance: ACETAMINOPHEN
     Indication: PREMEDICATION
     Dosage: 500 MG, AS REQ^D
     Route: 065
     Dates: start: 20070626
  18. CHLORPHENAMINE [Concomitant]
     Active Substance: CHLORPHENIRAMINE MALEATE
     Indication: SEASONAL ALLERGY
     Dosage: 2 MG, AS REQ^D
     Route: 065
     Dates: start: 200503
  19. CHLORPHENAMINE [Concomitant]
     Active Substance: CHLORPHENIRAMINE MALEATE
     Indication: NASAL CONGESTION
  20. SALBUTAMOL [Concomitant]
     Active Substance: ALBUTEROL
     Indication: PRODUCT USED FOR UNKNOWN INDICATION
     Dosage: 2 DF, AS REQ^D
     Route: 065
     Dates: start: 2003
  21. IMODIUM                            /00384302/ [Concomitant]
     Indication: PRODUCT USED FOR UNKNOWN INDICATION
     Dosage: 15 ML, AS REQ^D
     Route: 065
     Dates: start: 20021120
  22. INFLUENZA [Concomitant]
     Active Substance: INFLUENZA VIRUS VACCINE
     Indication: INFLUENZA
  23. VENTOLIN [Concomitant]
     Active Substance: ALBUTEROL SULFATE
     Indication: RESPIRATORY DISORDER
  24. ERYTHROMYCIN. [Concomitant]
     Active Substance: ERYTHROMYCIN
     Indication: EYE INFECTION
  25. IMODIUM [Concomitant]
     Active Substance: LOPERAMIDE HYDROCHLORIDE
     Indication: GASTROINTESTINAL DISORDER
  26. HYDROCORTISONE. [Concomitant]
     Active Substance: HYDROCORTISONE
     Indication: CORTISOL DECREASED
     Dosage: 5 MG, 2X/DAY:BID
     Route: 065
     Dates: start: 20060127
  27. HYDROCORTISONE. [Concomitant]
     Active Substance: HYDROCORTISONE
     Dosage: 7.5 ML, 1X/DAY:QD
     Route: 065
     Dates: start: 20040713, end: 20060127
  28. AMOXICILLIN. [Concomitant]
     Active Substance: AMOXICILLIN
     Indication: PRODUCT USED FOR UNKNOWN INDICATION
     Dosage: 125 MG, 2X/DAY:BID
     Route: 065
     Dates: start: 2003
  29. SAVLON [CETRIMIDE] [Concomitant]
     Indication: BLISTER
  30. ERYTHROMYCIN. [Concomitant]
     Active Substance: ERYTHROMYCIN
     Indication: INFECTION
  31. PIROXICAM. [Concomitant]
     Active Substance: PIROXICAM
     Indication: PAIN

REACTIONS (6)
  - Feeling hot [Recovered/Resolved]
  - Infusion related reaction [Recovered/Resolved]
  - Pallor [Recovered/Resolved]
  - Tachypnoea [Recovered/Resolved]
  - Flushing [Recovered/Resolved]
  - Petit mal epilepsy [Recovered/Resolved]

NARRATIVE: CASE EVENT DATE: 20070821
